FAERS Safety Report 6582942-4 (Version None)
Quarter: 2010Q1

REPORT INFORMATION
  Report Type: 
  Country: None (occurrence: None)
  Receive Date: 20100204
  Receipt Date: 20100105
  Transmission Date: 20100710
  Serious: Yes (Other)
  Sender: FDA-Public Use
  Company Number: 1000011634

PATIENT
  Age: 86 Year
  Sex: Female
  Weight: 41 kg

DRUGS (4)
  1. MEMANTINE HCL [Suspect]
     Indication: DEMENTIA
     Dosage: 20 MG (20 MG, 1 IN 1 D), ORAL
     Route: 048
     Dates: end: 20100105
  2. MEMANTINE HCL [Suspect]
     Indication: DEMENTIA
     Dosage: 5 MG (5 MG, 1 IN 1 D), ORAL, 10 MG (10 MG, 1 IN 1 D), ORAL,  15 MG (15 MG, 1 IN 1 D), ORAL
     Route: 048
     Dates: start: 20091214
  3. RAMIPRIL [Concomitant]
  4. FLECAINIDE [Concomitant]

REACTIONS (5)
  - ANXIETY [None]
  - BALANCE DISORDER [None]
  - DISORIENTATION [None]
  - DIZZINESS [None]
  - SUICIDAL IDEATION [None]
